FAERS Safety Report 6095807-1 (Version None)
Quarter: 2009Q1

REPORT INFORMATION
  Report Type: 
  Country: None (occurrence: None)
  Receive Date: 20090227
  Receipt Date: 20081017
  Transmission Date: 20090719
  Serious: No
  Sender: FDA-Public Use
  Company Number: A0733702A

PATIENT
  Age: 28 Year
  Sex: Female
  Weight: 46.8 kg

DRUGS (3)
  1. LAMICTAL [Suspect]
     Indication: BIPOLAR DISORDER
     Dosage: 500MG PER DAY
     Route: 048
     Dates: start: 20070601
  2. ZYPREXA [Concomitant]
     Dosage: 7.5MG PER DAY
     Route: 048
     Dates: start: 20070601
  3. VALIUM [Concomitant]
     Dosage: 5MG PER DAY
     Route: 048
     Dates: start: 20070401

REACTIONS (3)
  - ADVERSE EVENT [None]
  - DELIVERY [None]
  - DRUG EXPOSURE DURING PREGNANCY [None]
